FAERS Safety Report 8824801 (Version 1)
Quarter: 2012Q4

REPORT INFORMATION
  Report Type: 
  Country: US (occurrence: US)
  Receive Date: 20121004
  Receipt Date: 20121004
  Transmission Date: 20130627
  Serious: Yes (Other)
  Sender: FDA-Public Use
  Company Number: US-ELI_LILLY_AND_COMPANY-US201209007002

PATIENT
  Age: 93 Year
  Sex: Female

DRUGS (1)
  1. HUMALOG 25% LISPRO, 75% NPL [Suspect]
     Indication: DIABETES MELLITUS
     Dosage: UNK
     Dates: start: 1980

REACTIONS (4)
  - Eyeball avulsion [Not Recovered/Not Resolved]
  - Macular degeneration [Not Recovered/Not Resolved]
  - Visual impairment [Not Recovered/Not Resolved]
  - Fatigue [Unknown]
